FAERS Safety Report 7772107-2 (Version None)
Quarter: 2011Q3

REPORT INFORMATION
  Report Type: 
  Country: None (occurrence: None)
  Receive Date: 20110922
  Receipt Date: 20100628
  Transmission Date: 20111222
  Serious: No
  Sender: FDA-Public Use
  Company Number: US-ASTRAZENECA-2010SE30172

PATIENT
  Age: 30 Year
  Sex: Female
  Weight: 86.6 kg

DRUGS (5)
  1. DURADRIN [Concomitant]
  2. SEROQUEL [Suspect]
     Indication: INSOMNIA
     Route: 048
     Dates: start: 20060818, end: 20090108
  3. LUNESTA [Concomitant]
  4. SEROQUEL [Suspect]
     Indication: BIPOLAR DISORDER
     Route: 048
     Dates: start: 20060818, end: 20090108
  5. LAMICTAL [Concomitant]

REACTIONS (3)
  - MUSCLE SPASMS [None]
  - DRUG DOSE OMISSION [None]
  - TREMOR [None]
